FAERS Safety Report 5217900-5 (Version None)
Quarter: 2007Q1

REPORT INFORMATION
  Report Type: 
  Country: None (occurrence: None)
  Receive Date: 20070124
  Receipt Date: 20070115
  Transmission Date: 20070707
  Serious: Yes (Hospitalization)
  Sender: FDA-Public Use
  Company Number: US-ABBOTT-07P-163-0355906-00

PATIENT
  Sex: Male

DRUGS (6)
  1. DEPAKENE [Suspect]
     Indication: EPILEPSY
     Route: 065
     Dates: start: 20010523, end: 20061213
  2. DEPAKENE [Suspect]
     Dates: start: 20061214
  3. CLOBAZAM [Concomitant]
     Indication: LENNOX-GASTAUT SYNDROME
     Route: 048
     Dates: start: 20060718, end: 20061213
  4. CLOBAZAM [Concomitant]
     Route: 048
     Dates: start: 20061214, end: 20061214
  5. CLOBAZAM [Concomitant]
     Route: 048
     Dates: start: 20061215
  6. TOPIRAMATE [Concomitant]
     Indication: EPILEPSY
     Route: 065
     Dates: start: 20010101

REACTIONS (6)
  - ANAEMIA MACROCYTIC [None]
  - ANTICONVULSANT DRUG LEVEL INCREASED [None]
  - DRUG LEVEL INCREASED [None]
  - NEUTROPHIL PELGER-HUET ANOMALY PRESENT [None]
  - PNEUMONIA [None]
  - THROMBOCYTOPENIA [None]
